FAERS Safety Report 23268295 (Version 3)
Quarter: 2024Q1

REPORT INFORMATION
  Report Type: Spontaneous
  Country: CA (occurrence: CA)
  Receive Date: 20231206
  Receipt Date: 20240214
  Transmission Date: 20240410
  Serious: Yes (Death, Hospitalization)
  Sender: FDA-Public Use
  Company Number: CA-KYOWAKIRIN-2022KK020521

PATIENT

DRUGS (22)
  1. POTELIGEO [Suspect]
     Active Substance: MOGAMULIZUMAB-KPKC
     Indication: Cutaneous T-cell lymphoma stage II
     Dosage: 66 MG (01 DAY)
     Route: 042
     Dates: start: 20220617, end: 20220617
  2. POTELIGEO [Suspect]
     Active Substance: MOGAMULIZUMAB-KPKC
     Dosage: 60 MG (15 DAY)
     Route: 042
  3. POTELIGEO [Suspect]
     Active Substance: MOGAMULIZUMAB-KPKC
     Dosage: 60 MG (28 DAY CYCLE)
     Route: 042
  4. POTELIGEO [Suspect]
     Active Substance: MOGAMULIZUMAB-KPKC
     Dosage: 66 MG
     Route: 042
     Dates: start: 20220624
  5. POTELIGEO [Suspect]
     Active Substance: MOGAMULIZUMAB-KPKC
     Dosage: 66 MG
     Route: 042
     Dates: start: 20220704
  6. POTELIGEO [Suspect]
     Active Substance: MOGAMULIZUMAB-KPKC
     Dosage: 66 MG
     Route: 042
     Dates: start: 20220711
  7. POTELIGEO [Suspect]
     Active Substance: MOGAMULIZUMAB-KPKC
     Dosage: 66 MG
     Route: 042
     Dates: start: 20220719
  8. POTELIGEO [Suspect]
     Active Substance: MOGAMULIZUMAB-KPKC
     Dosage: 58 MG
     Route: 042
     Dates: start: 20220802
  9. POTELIGEO [Suspect]
     Active Substance: MOGAMULIZUMAB-KPKC
     Dosage: 56 MG
     Route: 042
     Dates: start: 20220816
  10. POTELIGEO [Suspect]
     Active Substance: MOGAMULIZUMAB-KPKC
     Dosage: 56 MG
     Route: 042
     Dates: start: 20220830
  11. POTELIGEO [Suspect]
     Active Substance: MOGAMULIZUMAB-KPKC
     Dosage: 56 MG
     Route: 042
     Dates: start: 20220830
  12. POTELIGEO [Suspect]
     Active Substance: MOGAMULIZUMAB-KPKC
     Dosage: 58 MG
     Route: 042
     Dates: start: 20220913
  13. POTELIGEO [Suspect]
     Active Substance: MOGAMULIZUMAB-KPKC
     Dosage: 58 MG
     Route: 042
     Dates: start: 20220913
  14. POTELIGEO [Suspect]
     Active Substance: MOGAMULIZUMAB-KPKC
     Dosage: 58 MG
     Route: 042
     Dates: start: 20220927
  15. POTELIGEO [Suspect]
     Active Substance: MOGAMULIZUMAB-KPKC
     Dosage: 60 MG (DAY 1, CYCLE 5)
     Route: 042
     Dates: start: 20221012, end: 20221012
  16. POTELIGEO [Suspect]
     Active Substance: MOGAMULIZUMAB-KPKC
     Dosage: 60 MG
     Route: 042
     Dates: start: 20221012, end: 20221026
  17. POTELIGEO [Suspect]
     Active Substance: MOGAMULIZUMAB-KPKC
     Dosage: UNK
     Route: 042
     Dates: start: 20221026
  18. APIXABAN [Concomitant]
     Active Substance: APIXABAN
     Indication: Deep vein thrombosis
     Dosage: 5 MG, BID
     Route: 048
     Dates: start: 20221012
  19. METOCLOPRAMIDE [Concomitant]
     Active Substance: METOCLOPRAMIDE
     Indication: Nausea
     Dosage: 10 MG, Q6H (PRN (AS NEEDED))
     Route: 048
     Dates: start: 202206
  20. ROSUVASTATIN [Concomitant]
     Active Substance: ROSUVASTATIN
     Indication: Dyslipidaemia
     Dosage: 10 MG, QD (DIE) (LONG TERM)
     Route: 048
  21. ACETAMINOPHEN [Concomitant]
     Active Substance: ACETAMINOPHEN
     Indication: Pain
     Dosage: 500 MG, PRN (LONG TERM)
     Route: 048
  22. ACETAMINOPHEN [Concomitant]
     Active Substance: ACETAMINOPHEN
     Indication: Pyrexia

REACTIONS (5)
  - Oedema [Fatal]
  - Hypercalcaemia [Recovered/Resolved]
  - Generalised oedema [Unknown]
  - Hypotension [Unknown]
  - Inappropriate schedule of product administration [Unknown]

NARRATIVE: CASE EVENT DATE: 20220922
